FAERS Safety Report 9543929 (Version 2)
Quarter: 2013Q3

REPORT INFORMATION
  Report Type: Spontaneous
  Country: US (occurrence: US)
  Receive Date: 20130923
  Receipt Date: 20130925
  Transmission Date: 20140515
  Serious: Yes (Hospitalization)
  Sender: FDA-Public Use
  Company Number: US-BAYER-2013-114553

PATIENT
  Age: 36 Year
  Sex: Female
  Weight: 129.71 kg

DRUGS (6)
  1. YASMIN [Suspect]
     Dosage: UNK
     Dates: start: 2007, end: 2007
  2. DIOVAN [VALSARTAN] [Concomitant]
     Indication: HYPERTENSION
  3. AYGESTIN [Concomitant]
  4. MICONAZOLE NITRATE [Concomitant]
  5. LEVAQUIN [Concomitant]
  6. DARVOCET [Concomitant]

REACTIONS (2)
  - Thrombosis [None]
  - Thrombophlebitis superficial [None]
